FAERS Safety Report 15249986 (Version 2)
Quarter: 2018Q3

REPORT INFORMATION
  Report Type: Spontaneous
  Country: AU (occurrence: AU)
  Receive Date: 20180807
  Receipt Date: 20180912
  Transmission Date: 20181010
  Serious: Yes (Hospitalization, Disabling, Other)
  Sender: FDA-Public Use
  Company Number: AU-GLAXOSMITHKLINE-AU2017GSK075520

PATIENT
  Age: 29 Year
  Sex: Male
  Weight: 70 kg

DRUGS (2)
  1. TAFENOQUINE [Suspect]
     Active Substance: TAFENOQUINE
     Indication: MALARIA PROPHYLAXIS
     Dosage: 400 MG, 1D
     Dates: start: 19990529, end: 19990531
  2. DOXYCYCLINE. [Concomitant]
     Active Substance: DOXYCYCLINE
     Indication: PRODUCT USED FOR UNKNOWN INDICATION
     Dosage: 100 MG, UNK

REACTIONS (18)
  - Depression [Not Recovered/Not Resolved]
  - General physical health deterioration [Unknown]
  - Neuropsychiatric symptoms [Not Recovered/Not Resolved]
  - Encephalopathy [Not Recovered/Not Resolved]
  - Auditory disorder [Not Recovered/Not Resolved]
  - Malaria [Not Recovered/Not Resolved]
  - Plasmodium vivax infection [Not Recovered/Not Resolved]
  - Drug ineffective [Not Recovered/Not Resolved]
  - Anxiety [Not Recovered/Not Resolved]
  - Cognitive disorder [Unknown]
  - Tinnitus [Unknown]
  - Toxicity to various agents [Unknown]
  - Disturbance in attention [Unknown]
  - Balance disorder [Not Recovered/Not Resolved]
  - Poisoning [Unknown]
  - Brain injury [Unknown]
  - Memory impairment [Unknown]
  - Vertigo [Unknown]

NARRATIVE: CASE EVENT DATE: 199906
